FAERS Safety Report 5237799-0 (Version None)
Quarter: 2007Q1

REPORT INFORMATION
  Report Type: 
  Country: None (occurrence: None)
  Receive Date: 20070214
  Receipt Date: 20070202
  Transmission Date: 20070707
  Serious: Yes (Other)
  Sender: FDA-Public Use
  Company Number: US-ROCHE-481303

PATIENT
  Age: 45 Year
  Sex: Female

DRUGS (2)
  1. PEGASYS [Suspect]
     Route: 065
     Dates: start: 20070115
  2. COPEGUS [Suspect]
     Route: 065
     Dates: start: 20070115

REACTIONS (2)
  - CARDIOMEGALY [None]
  - FATIGUE [None]
